FAERS Safety Report 15244400 (Version 1)
Quarter: 2018Q4

REPORT INFORMATION
  Report Type: Spontaneous
  Country: NZ (occurrence: NZ)
  Receive Date: 20180806
  Receipt Date: 20180806
  Transmission Date: 20190204
  Serious: Yes (Other)
  Sender: FDA-Public Use
  Company Number: NZ-MYLANLABS-2018M1057501

PATIENT
  Age: 69 Year
  Sex: Male

DRUGS (2)
  1. LITHICARB FC [Suspect]
     Active Substance: LITHIUM CARBONATE
     Indication: BIPOLAR DISORDER
     Dosage: 625 MG, UNK (DOSE INCREASED FROM 625MG TO 750MG)
  2. LITHICARB FC [Suspect]
     Active Substance: LITHIUM CARBONATE
     Dosage: 750 MG, QD
     Route: 048
     Dates: start: 20180525

REACTIONS (2)
  - Drug ineffective [Not Recovered/Not Resolved]
  - Malaise [Unknown]
